FAERS Safety Report 5239013-9 (Version None)
Quarter: 2007Q1

REPORT INFORMATION
  Report Type: 
  Country: None (occurrence: None)
  Receive Date: 20070209
  Receipt Date: 20070129
  Transmission Date: 20070707
  Serious: Yes (Life-Threatening)
  Sender: FDA-Public Use
  Company Number: ADV1-07

PATIENT
  Age: 82 Year
  Sex: Female

DRUGS (5)
  1. TOBRAMYCIN [Suspect]
     Indication: HIP ARTHROPLASTY
     Dosage: ONCE, IMPLANT 049
  2. TOBRAMYCIN [Suspect]
     Indication: INFECTION
     Dosage: ONCE, IMPLANT 049
  3. INTRANASAL CALCITONIN [Concomitant]
  4. WEEKLY ALENDRONATE [Concomitant]
  5. FAMOTIDINE [Concomitant]

REACTIONS (11)
  - ARTHRALGIA [None]
  - ARTHRITIS INFECTIVE [None]
  - CELLULITIS [None]
  - HAEMATOCRIT DECREASED [None]
  - HAEMOGLOBIN DECREASED [None]
  - INCISION SITE ERYTHEMA [None]
  - INFLUENZA LIKE ILLNESS [None]
  - RENAL FAILURE ACUTE [None]
  - SEPTIC SHOCK [None]
  - STAPHYLOCOCCAL INFECTION [None]
  - URINE OUTPUT DECREASED [None]
